FAERS Safety Report 5713105-X (Version None)
Quarter: 2008Q2

REPORT INFORMATION
  Report Type: 
  Country: None (occurrence: None)
  Receive Date: 20080418
  Receipt Date: 20080407
  Transmission Date: 20081010
  Serious: Yes (Life-Threatening, Other)
  Sender: FDA-Public Use
  Company Number: 2007-04178

PATIENT
  Age: 62 Year
  Sex: Male
  Weight: 83 kg

DRUGS (8)
  1. VELCADE [Suspect]
     Indication: MULTIPLE MYELOMA
     Dosage: 1.30 MG/KG, INTRAVENOUS; 1.00 MG/M2, INTRAVENOUS; 2.6 MG, INTRAVENOUS
     Route: 042
     Dates: start: 20071206
  2. VELCADE [Suspect]
     Indication: MULTIPLE MYELOMA
     Dosage: 1.30 MG/KG, INTRAVENOUS; 1.00 MG/M2, INTRAVENOUS; 2.6 MG, INTRAVENOUS
     Route: 042
     Dates: start: 20080307
  3. ORGADRONE (DEXAMETHASONE SODIUM PHOSPHATE) [Concomitant]
  4. LASIX [Concomitant]
  5. SLOW-K [Concomitant]
  6. LANSOPRAZOLE [Concomitant]
  7. SELBEX (TEPRENONE) [Concomitant]
  8. ADONA (CARBAZOCHROME SODIUM SULFONATE) [Concomitant]

REACTIONS (4)
  - BRONCHIAL HAEMORRHAGE [None]
  - CARDIAC FAILURE [None]
  - CARDIOMEGALY [None]
  - PNEUMONITIS [None]
